FAERS Safety Report 20999049 (Version 1)
Quarter: 2022Q2

REPORT INFORMATION
  Report Type: Report from Study
  Country: CO (occurrence: CO)
  Receive Date: 20220623
  Receipt Date: 20220623
  Transmission Date: 20220721
  Serious: Yes (Hospitalization, Other)
  Sender: FDA-Public Use
  Company Number: CO-BAYER-2022A044342

PATIENT
  Age: 30 Year
  Sex: Male

DRUGS (6)
  1. ADEMPAS [Suspect]
     Active Substance: RIOCIGUAT
     Indication: Pulmonary hypertension
     Dosage: 2.5 MG, Q8HR
     Dates: start: 20200529
  2. MACITENTAN [Concomitant]
     Active Substance: MACITENTAN
     Indication: Pulmonary hypertension
     Dosage: UNK
  3. MACITENTAN [Concomitant]
     Active Substance: MACITENTAN
     Indication: Pulmonary hypertension
  4. MACITENTAN [Concomitant]
     Active Substance: MACITENTAN
     Indication: Pulmonary hypertension
  5. WARFARIN [Concomitant]
     Active Substance: WARFARIN
     Indication: Embolism
     Dosage: UNK
  6. WARFARIN [Concomitant]
     Active Substance: WARFARIN
     Indication: Embolism

REACTIONS (12)
  - Tuberculosis [None]
  - Lung disorder [None]
  - Tuberculosis [Recovering/Resolving]
  - Lung perforation [Recovering/Resolving]
  - Catheterisation cardiac [None]
  - Dyspnoea [Recovering/Resolving]
  - Cardiac operation [Unknown]
  - Endarterectomy [Unknown]
  - Lung perforation [Unknown]
  - Tuberculosis [Unknown]
  - Dyspnoea [Unknown]
  - Surgery [None]

NARRATIVE: CASE EVENT DATE: 20220314
